FAERS Safety Report 9018411 (Version 4)
Quarter: 2013Q2

REPORT INFORMATION
  Report Type: Spontaneous
  Country: DE (occurrence: DE)
  Receive Date: 20130118
  Receipt Date: 20130625
  Transmission Date: 20140414
  Serious: Yes (Hospitalization)
  Sender: FDA-Public Use
  Company Number: DE-VERTEX PHARMACEUTICALS INC.-2013-000757

PATIENT
  Age: 56 Year
  Sex: Male

DRUGS (6)
  1. INCIVO [Suspect]
     Indication: CHRONIC HEPATITIS C
     Dosage: DOSAGE FORM: TABLET
     Route: 048
     Dates: start: 20121016
  2. PEGASYS [Suspect]
     Indication: CHRONIC HEPATITIS C
     Dosage: DOSAGE FORM: UNKNOWN
     Route: 058
     Dates: start: 20121016
  3. COPEGUS [Suspect]
     Indication: CHRONIC HEPATITIS C
     Dosage: DOSAGE FORM: TABLET
     Route: 048
     Dates: start: 20121016
  4. RAMIPRIL [Concomitant]
     Indication: HYPERTENSION
     Dosage: DOSAGE FORM: TABLET
     Route: 048
     Dates: start: 20121102
  5. RAMIPRIL [Concomitant]
     Dosage: DOSAGE FORM: TABLET
     Route: 048
  6. OMEPRAZOLE [Concomitant]
     Dosage: DOSAGE FORM: CAPSULE
     Route: 048
     Dates: start: 20121120

REACTIONS (2)
  - Depression [Not Recovered/Not Resolved]
  - Nausea [Unknown]
